FAERS Safety Report 4407114-0 (Version None)
Quarter: 2004Q3

REPORT INFORMATION
  Report Type: 
  Country: None (occurrence: None)
  Receive Date: 20040721
  Receipt Date: 20040708
  Transmission Date: 20050211
  Serious: Yes (Hospitalization, Other)
  Sender: FDA-Public Use
  Company Number: 2004026318

PATIENT
  Age: 69 Year
  Sex: Female

DRUGS (3)
  1. NEURONTIN [Suspect]
     Indication: ILL-DEFINED DISORDER
  2. CELECOXIB (CELECOXIB) [Suspect]
     Indication: ILL-DEFINED DISORDER
  3. INSULIN [Suspect]
     Indication: ILL-DEFINED DISORDER

REACTIONS (10)
  - DIABETES MELLITUS [None]
  - DIFFICULTY IN WALKING [None]
  - ECZEMA [None]
  - GASTROINTESTINAL DISORDER [None]
  - LOCALISED INFECTION [None]
  - LOSS OF CONSCIOUSNESS [None]
  - NERVE INJURY [None]
  - PAIN [None]
  - PARAESTHESIA [None]
  - SPINAL DISORDER [None]
